FAERS Safety Report 6440202-6 (Version None)
Quarter: 2009Q4

REPORT INFORMATION
  Report Type: 
  Country: None (occurrence: None)
  Receive Date: 20091113
  Receipt Date: 20090903
  Transmission Date: 20100525
  Serious: No
  Sender: FDA-Public Use
  Company Number: A0805806A

PATIENT
  Age: 73 Year
  Sex: Male

DRUGS (7)
  1. COREG [Suspect]
     Indication: HYPERTENSION
     Dosage: 25MG TWICE PER DAY
     Route: 048
     Dates: start: 20090813
  2. WARFARIN SODIUM [Concomitant]
  3. BENICAR [Concomitant]
  4. ALDACTONE [Concomitant]
  5. LASIX [Concomitant]
  6. ZOCOR [Concomitant]
  7. XANAX [Concomitant]

REACTIONS (1)
  - DRUG INEFFECTIVE [None]
